FAERS Safety Report 16065257 (Version 2)
Quarter: 2019Q2

REPORT INFORMATION
  Report Type: Report from Study
  Country: US (occurrence: US)
  Receive Date: 20190313
  Receipt Date: 20190506
  Transmission Date: 20190711
  Serious: Yes (Other)
  Sender: FDA-Public Use
  Company Number: US-SA-2019SA066077

PATIENT
  Age: 73 Year
  Sex: Male

DRUGS (3)
  1. INSULIN GLARGINE/LIXISENATIDE [Suspect]
     Active Substance: INSULIN GLARGINE\LIXISENATIDE
     Dosage: 30 U, QD (AT NIGHT)
     Dates: start: 20190213
  2. SOLOSTAR [Suspect]
     Active Substance: DEVICE
     Dosage: UNK
  3. INSULIN GLARGINE/LIXISENATIDE [Suspect]
     Active Substance: INSULIN GLARGINE\LIXISENATIDE
     Dosage: UNK
     Dates: start: 20190213

REACTIONS (6)
  - Blood glucose increased [Unknown]
  - Feeling abnormal [Unknown]
  - Injection site pain [Unknown]
  - Inappropriate schedule of product administration [Unknown]
  - Glycosylated haemoglobin decreased [Unknown]
  - Intentional product misuse [Unknown]
